FAERS Safety Report 15616944 (Version 1)
Quarter: 2018Q4

REPORT INFORMATION
  Report Type: Spontaneous
  Country: GB (occurrence: GB)
  Receive Date: 20181114
  Receipt Date: 20181114
  Transmission Date: 20190205
  Serious: Yes (Other)
  Sender: FDA-Public Use
  Company Number: GB-PFIZER INC-2018460047

PATIENT
  Age: 31 Year
  Sex: Female
  Weight: 124 kg

DRUGS (4)
  1. ESCITALOPRAM [Concomitant]
     Active Substance: ESCITALOPRAM OXALATE
     Dosage: UNK
  2. COCODAMOL [Concomitant]
     Active Substance: ACETAMINOPHEN\CODEINE PHOSPHATE
     Dosage: UNK
  3. CELEBREX [Suspect]
     Active Substance: CELECOXIB
     Indication: HEADACHE
     Dosage: 200 MG, 1X/DAY
     Route: 048
     Dates: start: 20180827, end: 20181019
  4. CERAZETTE [DESOGESTREL] [Concomitant]
     Dosage: UNK

REACTIONS (3)
  - Eye haemorrhage [Unknown]
  - Vitreous floaters [Unknown]
  - Visual impairment [Unknown]

NARRATIVE: CASE EVENT DATE: 20181017
